FAERS Safety Report 19616566 (Version 1)
Quarter: 2021Q3

REPORT INFORMATION
  Report Type: Spontaneous
  Country: US (occurrence: US)
  Receive Date: 20210727
  Receipt Date: 20210727
  Transmission Date: 20211014
  Serious: No
  Sender: FDA-Public Use
  Company Number: US-ABBVIE-21K-163-3826494-00

PATIENT
  Age: 73 Year
  Sex: Female

DRUGS (4)
  1. RADIOACTIVE IODINE [Concomitant]
     Active Substance: SODIUM IODIDE I-131
     Indication: PRODUCT USED FOR UNKNOWN INDICATION
  2. LEVOTHYROXINE. [Suspect]
     Active Substance: LEVOTHYROXINE
     Indication: PRODUCT USED FOR UNKNOWN INDICATION
     Route: 065
  3. SYNTHROID [Suspect]
     Active Substance: LEVOTHYROXINE SODIUM
     Indication: PRODUCT USED FOR UNKNOWN INDICATION
     Route: 048
  4. BIOTIN [Suspect]
     Active Substance: BIOTIN
     Indication: PRODUCT USED FOR UNKNOWN INDICATION
     Route: 065

REACTIONS (10)
  - Drug tolerance increased [Unknown]
  - Dry eye [Unknown]
  - Drug ineffective [Unknown]
  - Cardiac disorder [Recovered/Resolved]
  - Basedow^s disease [Unknown]
  - Eye disorder [Unknown]
  - Drug interaction [Unknown]
  - Cardiac disorder [Unknown]
  - Viral infection [Unknown]
  - Alopecia [Unknown]
